FAERS Safety Report 24270206 (Version 1)
Quarter: 2024Q3

REPORT INFORMATION
  Report Type: Spontaneous
  Country: CN (occurrence: CN)
  Receive Date: 20240830
  Receipt Date: 20240830
  Transmission Date: 20241017
  Serious: Yes (Hospitalization, Other)
  Sender: PFIZER
  Company Number: CN-PFIZER INC-PV202400112590

PATIENT
  Age: 51 Year
  Sex: Male

DRUGS (3)
  1. METHYLPREDNISOLONE [Suspect]
     Active Substance: METHYLPREDNISOLONE
     Indication: Gout
     Dosage: 4 ML, 1X/DAY
     Route: 048
     Dates: start: 20240521, end: 20240529
  2. ETORICOXIB [Suspect]
     Active Substance: ETORICOXIB
     Indication: Gout
     Dosage: 1 DF, 1X/DAY
     Route: 048
     Dates: start: 20240516, end: 20240728
  3. METHYLPREDNISOLONE SODIUM SUCCINATE [Suspect]
     Active Substance: METHYLPREDNISOLONE SODIUM SUCCINATE
     Indication: Gout
     Dosage: 40 MG, 1X/DAY
     Route: 041
     Dates: start: 20240517, end: 20240521

REACTIONS (7)
  - Haematochezia [Recovering/Resolving]
  - Gastrointestinal haemorrhage [Recovering/Resolving]
  - Anaemia [Recovering/Resolving]
  - Dizziness [Unknown]
  - Asthenia [Unknown]
  - Reflux gastritis [Unknown]
  - Diverticulum intestinal [Unknown]

NARRATIVE: CASE EVENT DATE: 20240726
